FAERS Safety Report 6743405-6 (Version None)
Quarter: 2010Q2

REPORT INFORMATION
  Report Type: 
  Country: None (occurrence: None)
  Receive Date: 20100527
  Receipt Date: 20100513
  Transmission Date: 20101027
  Serious: Yes (Hospitalization)
  Sender: FDA-Public Use
  Company Number: IE-ELI_LILLY_AND_COMPANY-IE201005004745

PATIENT
  Sex: Female

DRUGS (2)
  1. FORTEO [Suspect]
     Dates: start: 20081101, end: 20090701
  2. FORTEO [Suspect]
     Dates: start: 20100301

REACTIONS (6)
  - BACK PAIN [None]
  - FATIGUE [None]
  - HERPES ZOSTER [None]
  - MUSCULOSKELETAL STIFFNESS [None]
  - RASH [None]
  - SURGERY [None]
